FAERS Safety Report 5600367-2 (Version None)
Quarter: 2008Q1

REPORT INFORMATION
  Report Type: 
  Country: None (occurrence: None)
  Receive Date: 20080123
  Receipt Date: 20080121
  Transmission Date: 20080703
  Serious: Yes (Other)
  Sender: FDA-Public Use
  Company Number: BE-ASTRAZENECA-2007AC01930

PATIENT
  Age: 778 Month
  Sex: Female
  Weight: 65 kg

DRUGS (6)
  1. ARIMIDEX [Suspect]
     Indication: BREAST CANCER
     Route: 048
     Dates: start: 20070418
  2. ZOLPIDEM TARTRATE [Concomitant]
     Indication: INSOMNIA
     Route: 048
  3. CACIT D3 [Concomitant]
     Indication: OSTEOPENIA
     Route: 048
  4. SYMBICORT [Concomitant]
     Indication: BRONCHIAL HYPERREACTIVITY
     Dates: start: 20070901
  5. AUGMENTIN '250' [Concomitant]
     Indication: BRONCHOPNEUMONIA
     Dates: start: 20070901
  6. ANTI-INFLAMMATORY DRUGS [Concomitant]
     Indication: BACK PAIN

REACTIONS (1)
  - CRYPTOGENIC ORGANISING PNEUMONIA [None]
